FAERS Safety Report 8844860 (Version 1)
Quarter: 2012Q4

REPORT INFORMATION
  Report Type: 
  Country: US (occurrence: US)
  Receive Date: 20121017
  Receipt Date: 20121017
  Transmission Date: 20130627
  Serious: Yes (Other)
  Sender: FDA-Public Use
  Company Number: US-ELI_LILLY_AND_COMPANY-US201210001800

PATIENT
  Age: 62 Year
  Sex: Female

DRUGS (2)
  1. CYMBALTA [Suspect]
     Indication: DEPRESSION
     Dosage: UNK, unknown
     Dates: start: 2011
  2. CYMBALTA [Suspect]
     Dosage: UNK, unknown

REACTIONS (4)
  - Hysterectomy [Unknown]
  - Cholecystectomy [Unknown]
  - Headache [Not Recovered/Not Resolved]
  - Intentional drug misuse [Unknown]
